FAERS Safety Report 11471721 (Version 1)
Quarter: 2015Q3

REPORT INFORMATION
  Report Type: Report from Study
  Country: US (occurrence: US)
  Receive Date: 20150908
  Receipt Date: 20150908
  Transmission Date: 20151125
  Serious: Yes (Hospitalization, Other)
  Sender: FDA-Public Use
  Company Number: PHEH2014US025253

PATIENT
  Age: 48 Year
  Sex: Female
  Weight: 62.59 kg

DRUGS (1)
  1. GILENYA [Suspect]
     Active Substance: FINGOLIMOD HYDROCHLORIDE
     Indication: MULTIPLE SCLEROSIS
     Dosage: 0.5 MG, QD
     Route: 048
     Dates: start: 20141124

REACTIONS (10)
  - Urinary tract infection [Recovered/Resolved]
  - White blood cell count decreased [Not Recovered/Not Resolved]
  - Pneumonia [Not Recovered/Not Resolved]
  - Developmental hip dysplasia [Unknown]
  - Liver function test abnormal [Recovering/Resolving]
  - Influenza [Not Recovered/Not Resolved]
  - Nasopharyngitis [Unknown]
  - Vision blurred [Unknown]
  - Vertigo [Recovered/Resolved]
  - Optic neuritis [Recovering/Resolving]

NARRATIVE: CASE EVENT DATE: 20141212
